FAERS Safety Report 10713007 (Version 1)
Quarter: 2015Q1

REPORT INFORMATION
  Report Type: Spontaneous
  Country: US (occurrence: US)
  Receive Date: 20150115
  Receipt Date: 20150115
  Transmission Date: 20150721
  Serious: Yes (Hospitalization)
  Sender: FDA-Public Use
  Company Number: US-EMD SERONO-7030384

PATIENT
  Sex: Female
  Weight: 65 kg

DRUGS (1)
  1. REBIF [Suspect]
     Active Substance: INTERFERON BETA-1A
     Indication: MULTIPLE SCLEROSIS
     Route: 058
     Dates: start: 20080616

REACTIONS (4)
  - Spinal meningeal cyst [Unknown]
  - Thyroid cancer [Unknown]
  - Hypothyroidism [Recovered/Resolved]
  - Contrast media allergy [Unknown]

NARRATIVE: CASE EVENT DATE: 2009
